FAERS Safety Report 11272530 (Version 1)
Quarter: 2015Q2

REPORT INFORMATION
  Report Type: Spontaneous
  Country: US (occurrence: None)
  Receive Date: 20150625
  Receipt Date: 20150625
  Transmission Date: 20150821
  Serious: No
  Sender: FDA-Public Use
  Company Number: A-US2015-112102

PATIENT
  Age: 51 Year
  Sex: Female

DRUGS (2)
  1. REMODULIN [Concomitant]
     Active Substance: TREPROSTINIL
  2. OPSUMIT [Suspect]
     Active Substance: MACITENTAN
     Route: 048

REACTIONS (6)
  - Catheter site pain [None]
  - Catheter site erythema [None]
  - Catheter site swelling [None]
  - Headache [None]
  - Rash [None]
  - Catheter site warmth [None]
